FAERS Safety Report 4469472-0 (Version None)
Quarter: 2004Q4

REPORT INFORMATION
  Report Type: 
  Country: None (occurrence: None)
  Receive Date: 20041005
  Receipt Date: 20040922
  Transmission Date: 20050328
  Serious: Yes (Other)
  Sender: FDA-Public Use
  Company Number: 2004069636

PATIENT
  Sex: Female

DRUGS (1)
  1. DIFLUCAN [Suspect]
     Indication: ILL-DEFINED DISORDER

REACTIONS (4)
  - ALOPECIA [None]
  - DIARRHOEA [None]
  - HEADACHE [None]
  - VOMITING [None]
